FAERS Safety Report 6438550-9 (Version None)
Quarter: 2009Q4

REPORT INFORMATION
  Report Type: 
  Country: None (occurrence: None)
  Receive Date: 20091112
  Receipt Date: 20090803
  Transmission Date: 20100525
  Serious: No
  Sender: FDA-Public Use
  Company Number: US-ALLERGAN-0910767US

PATIENT
  Age: 91 Year
  Sex: Female

DRUGS (1)
  1. COMBIGAN [Suspect]
     Indication: GLAUCOMA
     Dosage: UNK, SINGLE
     Route: 047

REACTIONS (6)
  - EYE IRRITATION [None]
  - EYE PAIN [None]
  - EYE PRURITUS [None]
  - OROPHARYNGEAL PAIN [None]
  - SNEEZING [None]
  - VISUAL IMPAIRMENT [None]
